FAERS Safety Report 8830113 (Version 1)
Quarter: 2012Q4

REPORT INFORMATION
  Report Type: Report from Study
  Country: DE (occurrence: DE)
  Receive Date: 20121008
  Receipt Date: 20121008
  Transmission Date: 20130627
  Serious: Yes (Other)
  Sender: FDA-Public Use
  Company Number: DE-TEVA-363200GER

PATIENT
  Age: 74 None
  Sex: Male
  Weight: 69 kg

DRUGS (11)
  1. IRINOTECAN [Suspect]
     Indication: GASTRIC CANCER
     Dosage: 105 Milligram Daily;
     Route: 042
     Dates: start: 20101130, end: 20110302
  2. IRINOTECAN [Suspect]
     Dosage: 70 Milligram Daily;
     Route: 042
     Dates: start: 20110504, end: 20120912
  3. IRINOTECAN [Suspect]
     Route: 042
     Dates: end: 20111129
  4. BISOPROLOL [Concomitant]
     Indication: CARDIAC FAILURE
  5. ASPIRIN [Concomitant]
     Indication: CARDIAC FAILURE
     Dosage: 100 Milligram Daily;
  6. ARICEPT [Concomitant]
     Indication: DEMENTIA ALZHEIMER^S TYPE
  7. GALACORDIN [Concomitant]
     Indication: CARDIAC FAILURE
  8. FLUOROURACIL [Concomitant]
     Indication: GASTRIC CANCER
  9. FOLINIC ACID [Concomitant]
     Indication: GASTRIC CANCER
  10. GRANISETRON [Concomitant]
     Indication: PREMEDICATION
     Route: 042
  11. DEXAMETHASON [Concomitant]
     Indication: PREMEDICATION
     Route: 042

REACTIONS (3)
  - Pancytopenia [Unknown]
  - Neoplasm progression [Unknown]
  - Mass [None]
